FAERS Safety Report 10898821 (Version 1)
Quarter: 2015Q1

REPORT INFORMATION
  Report Type: Spontaneous
  Country: US (occurrence: US)
  Receive Date: 20150309
  Receipt Date: 20150309
  Transmission Date: 20150721
  Serious: No
  Sender: FDA-Public Use
  Company Number: US-009507513-1502USA012277

PATIENT
  Age: 73 Year
  Sex: Female

DRUGS (7)
  1. ZOCOR [Suspect]
     Active Substance: SIMVASTATIN
     Indication: BLOOD CHOLESTEROL INCREASED
     Dosage: 40 MG, ONCE A DAY
     Route: 048
     Dates: start: 2005
  2. SINGULAIR [Concomitant]
     Active Substance: MONTELUKAST SODIUM
  3. TORSEMIDE. [Concomitant]
     Active Substance: TORSEMIDE
  4. PREDNISONE. [Concomitant]
     Active Substance: PREDNISONE
  5. SYMBICORT [Concomitant]
     Active Substance: BUDESONIDE\FORMOTEROL FUMARATE DIHYDRATE
  6. SPIRIVA [Concomitant]
     Active Substance: TIOTROPIUM BROMIDE MONOHYDRATE
  7. K-DUR [Concomitant]
     Active Substance: POTASSIUM CHLORIDE

REACTIONS (1)
  - Alopecia [Not Recovered/Not Resolved]

NARRATIVE: CASE EVENT DATE: 20150126
